FAERS Safety Report 24548203 (Version 1)
Quarter: 2024Q4

REPORT INFORMATION
  Report Type: Spontaneous
  Country: US (occurrence: US)
  Receive Date: 20241025
  Receipt Date: 20241025
  Transmission Date: 20250115
  Serious: No
  Sender: ALEXION PHARMACEUTICALS
  Company Number: US-PROCTER+GAMBLE-PH24007211

PATIENT
  Age: 14 Month

DRUGS (1)
  1. PRILOSEC OTC [Suspect]
     Active Substance: OMEPRAZOLE MAGNESIUM
     Dosage: 1 CAPSUL, 1 ONLY

REACTIONS (2)
  - Exposure via ingestion [Unknown]
  - Accidental exposure to product by child [Unknown]
